FAERS Safety Report 4853910-5 (Version None)
Quarter: 2005Q4

REPORT INFORMATION
  Report Type: 
  Country: None (occurrence: None)
  Receive Date: 20051214
  Receipt Date: 20050916
  Transmission Date: 20060501
  Serious: Yes (Hospitalization, Disabling)
  Sender: FDA-Public Use
  Company Number: US-MERCK-0509USA02729

PATIENT
  Age: 55 Year
  Sex: Male
  Weight: 120 kg

DRUGS (16)
  1. VIOXX [Suspect]
     Indication: OSTEOARTHRITIS
     Route: 048
     Dates: start: 20011220, end: 20040626
  2. VIOXX [Suspect]
     Route: 048
     Dates: start: 20020611, end: 20040626
  3. VIOXX [Suspect]
     Indication: RHEUMATOID ARTHRITIS
     Route: 048
     Dates: start: 20011220, end: 20040626
  4. VIOXX [Suspect]
     Route: 048
     Dates: start: 20020611, end: 20040626
  5. ACETAMINOPHEN AND HYDROCODONE BITARTRATE [Concomitant]
     Route: 065
  6. AMOXICILLIN [Concomitant]
     Route: 065
  7. TUSSIONEX [Concomitant]
     Route: 065
  8. COMBIVENT [Concomitant]
     Route: 065
  9. PREDNISONE [Concomitant]
     Route: 065
  10. VIAGRA [Concomitant]
     Route: 065
  11. TEQUIN [Concomitant]
     Route: 065
  12. TOPROL-XL [Concomitant]
     Route: 065
  13. PLAVIX [Concomitant]
     Route: 065
  14. ADVAIR DISKUS 100/50 [Concomitant]
     Route: 065
  15. LISINOPRIL [Concomitant]
     Route: 065
  16. NITROQUICK [Concomitant]
     Route: 065

REACTIONS (16)
  - ACUTE MYOCARDIAL INFARCTION [None]
  - ACUTE SINUSITIS [None]
  - ANGINA PECTORIS [None]
  - ARTERIOSCLEROSIS [None]
  - ARTHRALGIA [None]
  - ARTHROPATHY [None]
  - BACK PAIN [None]
  - BRONCHITIS ACUTE [None]
  - CHOLELITHIASIS [None]
  - DEAFNESS [None]
  - DIZZINESS [None]
  - ERECTILE DYSFUNCTION [None]
  - HEPATIC ENZYME INCREASED [None]
  - HYPERLIPIDAEMIA [None]
  - ORGANIC ERECTILE DYSFUNCTION [None]
  - PLANTAR FASCIITIS [None]
